FAERS Safety Report 9227233 (Version 1)
Quarter: 2013Q1

REPORT INFORMATION
  Report Type: Spontaneous
  Country: US (occurrence: US)
  Receive Date: 20120914
  Receipt Date: 20120914
  Transmission Date: 20140127
  Serious: Yes (Other)
  Sender: FDA-Public Use
  Company Number: JPI-P-019356

PATIENT
  Age: 33 Year
  Sex: Female
  Weight: 89.81 kg

DRUGS (15)
  1. XYREM [Suspect]
     Indication: SLEEP DISORDER
     Dosage: 2 DOSES OF 2.25 GM TAKEN NIGHTLY/AT BEDTIME.
     Route: 048
     Dates: start: 20111111
  2. DIAZEPAM [Suspect]
     Indication: ANXIETY
  3. STEROID INJECTION NOS [Suspect]
     Indication: PHARYNGEAL OEDEMA
  4. STEROID INJECTION NOS [Suspect]
     Indication: EAR SWELLING
  5. STEROID INJECTION NOS [Suspect]
     Indication: LOCAL SWELLING
  6. DIPHENHYDRAMINE [Suspect]
     Indication: PHARYNGEAL OEDEMA
  7. DIPHENHYDRAMINE [Suspect]
     Indication: EAR SWELLING
  8. DIPHENHYDRAMINE [Suspect]
     Indication: LOCAL SWELLING
  9. AMITRIPTYLINE [Concomitant]
  10. PROPRANOLOL [Concomitant]
  11. KETOROLAC [Concomitant]
  12. ETHINYL ESTRADIOL AND LEVONORGESTREL [Concomitant]
  13. VITAMIN D [Concomitant]
  14. VITAMIN B12 [Concomitant]
  15. PROMETHAZINE [Concomitant]

REACTIONS (12)
  - Hypertension [None]
  - Pharyngeal oedema [None]
  - Ear swelling [None]
  - Local swelling [None]
  - Anxiety [None]
  - Infection [None]
  - Local swelling [None]
  - Local swelling [None]
  - Condition aggravated [None]
  - Joint swelling [None]
  - Decreased appetite [None]
  - Insomnia [None]
